FAERS Safety Report 5036089-9 (Version None)
Quarter: 2006Q2

REPORT INFORMATION
  Report Type: 
  Country: None (occurrence: None)
  Receive Date: 20060627
  Receipt Date: 20060616
  Transmission Date: 20061013
  Serious: Yes (Other)
  Sender: FDA-Public Use
  Company Number: FR-BOEHRINGER INGELHEIM PHARMACEUTICALS, INC.-2006-FF-00481FF

PATIENT
  Sex: Female
  Weight: 70 kg

DRUGS (9)
  1. SPIRIVA [Suspect]
     Indication: CHRONIC OBSTRUCTIVE PULMONARY DISEASE
     Route: 055
     Dates: start: 20060603
  2. EMAIL DIAMANT [Suspect]
     Indication: DENTAL TREATMENT
  3. VADEMECUM [Suspect]
     Indication: DENTAL TREATMENT
  4. IBUPROFEN [Concomitant]
  5. LEVOTHYROX [Concomitant]
     Indication: HYPOTHYROIDISM
  6. LANZOR [Concomitant]
  7. BROMAZEPAM [Concomitant]
  8. CLARITIN [Concomitant]
  9. PROTELOS [Concomitant]

REACTIONS (2)
  - DYSPNOEA [None]
  - HOT FLUSH [None]
